FAERS Safety Report 13574574 (Version 2)
Quarter: 2017Q3

REPORT INFORMATION
  Report Type: Report from Study
  Country: GB (occurrence: GB)
  Receive Date: 20170523
  Receipt Date: 20170917
  Transmission Date: 20171127
  Serious: Yes (Hospitalization, Other)
  Sender: FDA-Public Use
  Company Number: PHHY2013GB038334

PATIENT
  Age: 25 Year
  Sex: Female
  Weight: 102 kg

DRUGS (1)
  1. GILENYA [Suspect]
     Active Substance: FINGOLIMOD HYDROCHLORIDE
     Indication: RELAPSING-REMITTING MULTIPLE SCLEROSIS
     Dosage: 0.5 MG, QD
     Route: 048
     Dates: start: 20130312, end: 20150213

REACTIONS (17)
  - Dizziness [Recovering/Resolving]
  - Vision blurred [Recovering/Resolving]
  - Sensory disturbance [Unknown]
  - Incontinence [Unknown]
  - Blindness [Unknown]
  - Nocturia [Unknown]
  - Multiple sclerosis relapse [Recovering/Resolving]
  - Tension headache [Unknown]
  - Pain [Recovered/Resolved]
  - Micturition urgency [Unknown]
  - Visual acuity reduced [Unknown]
  - Central nervous system lesion [Unknown]
  - Stress [Unknown]
  - Vomiting [Recovering/Resolving]
  - Visual impairment [Recovering/Resolving]
  - Hypoaesthesia [Unknown]
  - Urinary tract infection [Recovered/Resolved]

NARRATIVE: CASE EVENT DATE: 20130414
